FAERS Safety Report 15098185 (Version 1)
Quarter: 2018Q3

REPORT INFORMATION
  Report Type: Spontaneous
  Country: US (occurrence: US)
  Receive Date: 20180702
  Receipt Date: 20180702
  Transmission Date: 20181010
  Serious: No
  Sender: FDA-Public Use
  Company Number: US-PFIZER INC-2018251055

PATIENT
  Age: 60 Year
  Sex: Female

DRUGS (1)
  1. METHOTREXATE SODIUM. [Suspect]
     Active Substance: METHOTREXATE SODIUM
     Indication: RHEUMATOID ARTHRITIS
     Dosage: 0.7 ML, WEEKLY (0.7 CC BY MOUTH ONCE WEEKLY)
     Route: 048

REACTIONS (4)
  - Anaemia [Not Recovered/Not Resolved]
  - Drug prescribing error [Unknown]
  - Red blood cell sedimentation rate increased [Not Recovered/Not Resolved]
  - C-reactive protein increased [Not Recovered/Not Resolved]
